FAERS Safety Report 5477179-6 (Version None)
Quarter: 2007Q4

REPORT INFORMATION
  Report Type: 
  Country: None (occurrence: None)
  Receive Date: 20071004
  Receipt Date: 20070927
  Transmission Date: 20080405
  Serious: Yes (Other)
  Sender: FDA-Public Use
  Company Number: A0685732A

PATIENT
  Age: 79 Year
  Sex: Female

DRUGS (8)
  1. TAGAMET [Suspect]
     Indication: DRUG USE FOR UNKNOWN INDICATION
     Dosage: 300MG PER DAY
     Route: 048
  2. DIPHENHYDRAMINE HCL [Suspect]
     Indication: DRUG USE FOR UNKNOWN INDICATION
     Dosage: 25MG THREE TIMES PER DAY
     Route: 048
  3. MAALOX [Concomitant]
  4. MERCUROCHROME [Concomitant]
  5. MULTI-VITAMIN [Concomitant]
  6. FOLIC ACID [Concomitant]
  7. ZINC SULFATE [Concomitant]
  8. ISOPTO TEARS [Concomitant]

REACTIONS (3)
  - DELIRIUM [None]
  - DYSTONIA [None]
  - TACHYCARDIA [None]
